FAERS Safety Report 8494476-0 (Version None)
Quarter: 2012Q2

REPORT INFORMATION
  Report Type: 
  Country: None (occurrence: None)
  Receive Date: 20120627
  Receipt Date: 20120611
  Transmission Date: 20120825
  Serious: Yes (Death)
  Sender: FDA-Public Use
  Company Number: EU-2012-10163

PATIENT
  Age: 47 Year

DRUGS (9)
  1. SAMSCA [Suspect]
     Indication: INAPPROPRIATE ANTIDIURETIC HORMONE SECRETION
     Dosage: 15 MG MILLIGRAM(S), DAILY DOSE ; 30 MG MILLIGRAM(S), DAILY DOSE ; 45 MG MILLIGRAM(S), DAILY DOSE
     Dates: start: 20120120, end: 20120206
  2. SAMSCA [Suspect]
     Indication: PARANEOPLASTIC SYNDROME
     Dosage: 15 MG MILLIGRAM(S), DAILY DOSE ; 30 MG MILLIGRAM(S), DAILY DOSE ; 45 MG MILLIGRAM(S), DAILY DOSE
     Dates: start: 20120120, end: 20120206
  3. SAMSCA [Suspect]
     Indication: HYPONATRAEMIA
     Dosage: 15 MG MILLIGRAM(S), DAILY DOSE ; 30 MG MILLIGRAM(S), DAILY DOSE ; 45 MG MILLIGRAM(S), DAILY DOSE
     Dates: start: 20120120, end: 20120206
  4. SAMSCA [Suspect]
     Indication: INAPPROPRIATE ANTIDIURETIC HORMONE SECRETION
     Dosage: 15 MG MILLIGRAM(S), DAILY DOSE ; 30 MG MILLIGRAM(S), DAILY DOSE ; 45 MG MILLIGRAM(S), DAILY DOSE
     Dates: start: 20120206, end: 20120401
  5. SAMSCA [Suspect]
     Indication: PARANEOPLASTIC SYNDROME
     Dosage: 15 MG MILLIGRAM(S), DAILY DOSE ; 30 MG MILLIGRAM(S), DAILY DOSE ; 45 MG MILLIGRAM(S), DAILY DOSE
     Dates: start: 20120206, end: 20120401
  6. SAMSCA [Suspect]
     Indication: HYPONATRAEMIA
     Dosage: 15 MG MILLIGRAM(S), DAILY DOSE ; 30 MG MILLIGRAM(S), DAILY DOSE ; 45 MG MILLIGRAM(S), DAILY DOSE
     Dates: start: 20120206, end: 20120401
  7. SAMSCA [Suspect]
     Indication: INAPPROPRIATE ANTIDIURETIC HORMONE SECRETION
     Dosage: 15 MG MILLIGRAM(S), DAILY DOSE ; 30 MG MILLIGRAM(S), DAILY DOSE ; 45 MG MILLIGRAM(S), DAILY DOSE
     Dates: end: 20120401
  8. SAMSCA [Suspect]
     Indication: PARANEOPLASTIC SYNDROME
     Dosage: 15 MG MILLIGRAM(S), DAILY DOSE ; 30 MG MILLIGRAM(S), DAILY DOSE ; 45 MG MILLIGRAM(S), DAILY DOSE
     Dates: end: 20120401
  9. SAMSCA [Suspect]
     Indication: HYPONATRAEMIA
     Dosage: 15 MG MILLIGRAM(S), DAILY DOSE ; 30 MG MILLIGRAM(S), DAILY DOSE ; 45 MG MILLIGRAM(S), DAILY DOSE
     Dates: end: 20120401

REACTIONS (2)
  - METASTATIC BRONCHIAL CARCINOMA [None]
  - NEOPLASM PROGRESSION [None]
